FAERS Safety Report 10055680 (Version 1)
Quarter: 2014Q2

REPORT INFORMATION
  Report Type: Other
  Country: CO (occurrence: CO)
  Receive Date: 20140403
  Receipt Date: 20140403
  Transmission Date: 20141212
  Serious: Yes (Hospitalization)
  Sender: FDA-Public Use
  Company Number: CO-SHIRE-CO201400898

PATIENT
  Age: 3 Year
  Sex: Female
  Weight: 9 kg

DRUGS (1)
  1. VPRIV [Suspect]
     Indication: GAUCHER^S DISEASE
     Dosage: OTHER(2, EVERY 15 DAYS)
     Route: 041
     Dates: start: 201309

REACTIONS (2)
  - Cardiopulmonary failure [Recovering/Resolving]
  - Drug dose omission [Recovered/Resolved]
